FAERS Safety Report 11735309 (Version 1)
Quarter: 2015Q4

REPORT INFORMATION
  Report Type: Spontaneous
  Country: US (occurrence: US)
  Receive Date: 20151113
  Receipt Date: 20151113
  Transmission Date: 20160304
  Serious: No
  Sender: FDA-Public Use
  Company Number: US-EMD SERONO-8051904

PATIENT
  Age: 32 Year
  Sex: Female

DRUGS (3)
  1. REBIF [Suspect]
     Active Substance: INTERFERON BETA-1A
     Indication: MULTIPLE SCLEROSIS
     Route: 058
  2. TOPAMAX [Concomitant]
     Active Substance: TOPIRAMATE
     Indication: PRODUCT USED FOR UNKNOWN INDICATION
  3. REBIF [Suspect]
     Active Substance: INTERFERON BETA-1A
     Route: 058

REACTIONS (6)
  - Nasopharyngitis [Not Recovered/Not Resolved]
  - Influenza like illness [Not Recovered/Not Resolved]
  - Injection site rash [Not Recovered/Not Resolved]
  - Headache [Not Recovered/Not Resolved]
  - Tremor [Not Recovered/Not Resolved]
  - Injection site erythema [Not Recovered/Not Resolved]
